FAERS Safety Report 25777213 (Version 1)
Quarter: 2025Q3

REPORT INFORMATION
  Report Type: Report from Study
  Country: BR (occurrence: BR)
  Receive Date: 20250909
  Receipt Date: 20250909
  Transmission Date: 20251020
  Serious: Yes (Other)
  Sender: NOVARTIS
  Company Number: BR-002147023-NVSC2025BR131040

PATIENT
  Sex: Female
  Weight: 84 kg

DRUGS (5)
  1. KISQALI [Suspect]
     Active Substance: RIBOCICLIB SUCCINATE
     Indication: Breast cancer metastatic
     Dosage: 3 DOSAGE FORM, QD ((FOR 21 CONSECUTIVE DAYS WITH A SEVEN-DAY BREAK)63 COATED TAB)
     Route: 065
     Dates: start: 20250618
  2. KISQALI [Suspect]
     Active Substance: RIBOCICLIB SUCCINATE
     Indication: Metastases to bone
  3. ANASTROZOLE [Concomitant]
     Active Substance: ANASTROZOLE
     Indication: Metastases to bone
     Dosage: 1 DOSAGE FORM, QD
     Route: 048
     Dates: start: 20250718
  4. ALBUTEROL [Concomitant]
     Active Substance: ALBUTEROL
     Indication: Asthma
     Dosage: UNK, TID (INHALER), ABOUT 5 YEARS AGO
     Route: 065
  5. GABAPENTIN [Concomitant]
     Active Substance: GABAPENTIN
     Indication: Pain
     Dosage: 3 DOSAGE FORM, QD (TABLET) (5 MONTHS AGO)
     Route: 048

REACTIONS (10)
  - Malaise [Unknown]
  - Memory impairment [Recovered/Resolved]
  - Fatigue [Recovered/Resolved]
  - Dyspnoea [Not Recovered/Not Resolved]
  - Visual impairment [Not Recovered/Not Resolved]
  - Dry skin [Not Recovered/Not Resolved]
  - Dizziness [Not Recovered/Not Resolved]
  - Bone pain [Not Recovered/Not Resolved]
  - Pain [Not Recovered/Not Resolved]
  - Peripheral swelling [Not Recovered/Not Resolved]
